FAERS Safety Report 18007788 (Version 2)
Quarter: 2020Q3

REPORT INFORMATION
  Report Type: Spontaneous
  Country: JP (occurrence: JP)
  Receive Date: 20200710
  Receipt Date: 20200715
  Transmission Date: 20201103
  Serious: Yes (Hospitalization, Other)
  Sender: FDA-Public Use
  Company Number: JP-BAYER-2020-015825

PATIENT
  Age: 75 Year
  Sex: Male
  Weight: 57 kg

DRUGS (5)
  1. STIVARGA [Suspect]
     Active Substance: REGORAFENIB
     Indication: HEPATOCELLULAR CARCINOMA
     Dosage: UNK
     Route: 048
     Dates: start: 20191209
  2. THYRADIN S [Concomitant]
     Active Substance: LEVOTHYROXINE SODIUM
     Indication: HYPOTHYROIDISM
     Dosage: DAILY DOSE 50 MG
     Route: 048
     Dates: start: 20181218
  3. NEXAVAR [Suspect]
     Active Substance: SORAFENIB
     Indication: HEPATOCELLULAR CARCINOMA
     Dosage: DAILY DOSE 400 MG
     Route: 048
     Dates: start: 20190611, end: 20191026
  4. NEXAVAR [Suspect]
     Active Substance: SORAFENIB
     Indication: HEPATOCELLULAR CARCINOMA
     Dosage: DAILY DOSE 400 MG
     Route: 048
     Dates: start: 20191101, end: 20191208
  5. BEZAFIBRATE [Concomitant]
     Active Substance: BEZAFIBRATE
     Indication: BILIARY TRACT DISORDER
     Dosage: DAILY DOSE 400 MG
     Route: 048
     Dates: start: 20181030

REACTIONS (11)
  - Haemobilia [Recovering/Resolving]
  - Off label use [None]
  - Hepatocellular carcinoma [None]
  - Abdominal pain upper [Recovering/Resolving]
  - Haemobilia [Recovering/Resolving]
  - Tumour invasion [None]
  - Cholangitis acute [Recovering/Resolving]
  - Ascites [Recovering/Resolving]
  - Haemobilia [None]
  - Hepatic enzyme increased [Recovering/Resolving]
  - C-reactive protein increased [Recovering/Resolving]

NARRATIVE: CASE EVENT DATE: 20190611
